FAERS Safety Report 21273066 (Version 1)
Quarter: 2022Q3

REPORT INFORMATION
  Report Type: Spontaneous
  Country: DK (occurrence: DK)
  Receive Date: 20220831
  Receipt Date: 20220831
  Transmission Date: 20221027
  Serious: Yes (Hospitalization)
  Sender: FDA-Public Use
  Company Number: None

PATIENT
  Age: 59 Year
  Sex: Male
  Weight: 130 kg

DRUGS (1)
  1. PRADAXA [Suspect]
     Active Substance: DABIGATRAN ETEXILATE MESYLATE
     Indication: Atrial flutter
     Route: 048
     Dates: start: 20120615, end: 20220815

REACTIONS (2)
  - Arthralgia [Not Recovered/Not Resolved]
  - Tendon rupture [Recovered/Resolved]

NARRATIVE: CASE EVENT DATE: 20120615
